FAERS Safety Report 7731756-8 (Version None)
Quarter: 2011Q3

REPORT INFORMATION
  Report Type: 
  Country: None (occurrence: None)
  Receive Date: 20110906
  Receipt Date: 20110825
  Transmission Date: 20111222
  Serious: Yes (Other)
  Sender: FDA-Public Use
  Company Number: PHEH2011US02603

PATIENT

DRUGS (2)
  1. GLEEVEC [Suspect]
     Dosage: 400 MG, QD
     Route: 048
  2. GLEEVEC [Suspect]
     Indication: GASTROINTESTINAL STROMAL TUMOUR
     Dosage: 400 MG, QD
     Route: 048
     Dates: start: 20110803

REACTIONS (1)
  - PNEUMOCYSTIS JIROVECI INFECTION [None]
